FAERS Safety Report 7700865-1 (Version None)
Quarter: 2011Q3

REPORT INFORMATION
  Report Type: 
  Country: None (occurrence: None)
  Receive Date: 20110822
  Receipt Date: 20110811
  Transmission Date: 20111222
  Serious: Yes (Hospitalization)
  Sender: FDA-Public Use
  Company Number: US-ROCHE-797754

PATIENT
  Age: 66 Year
  Sex: Female
  Weight: 59.3 kg

DRUGS (3)
  1. BEVACIZUMAB [Suspect]
     Indication: OVARIAN EPITHELIAL CANCER
     Dosage: TOTAL DOSE : 885 MG, , OVER 30-90 MIN ON DAY 1 BEGINNING WITH CYCLE 2, LAST DOSE : 13 JUNE 2011
     Route: 042
     Dates: start: 20110404
  2. CARBOPLATIN [Suspect]
     Indication: OVARIAN EPITHELIAL CANCER
     Dosage: AUC 6 ON D1.TOTAL DOSE : 491 MG LAST DOSE : 13 JUNE 2011
     Route: 042
     Dates: start: 20110404
  3. PACLITAXEL [Suspect]
     Indication: OVARIAN EPITHELIAL CANCER
     Dosage: TOTAL DOSE : 266 MG, OVER 1 HR ON D 1, 8 AND 15. LAST DOSE : 121 JUN 2011, PERMANENTLY DISCONTINUED.
     Route: 042
     Dates: start: 20110404

REACTIONS (1)
  - SMALL INTESTINAL OBSTRUCTION [None]
